FAERS Safety Report 23873451 (Version 2)
Quarter: 2024Q3

REPORT INFORMATION
  Report Type: Spontaneous
  Country: ES (occurrence: ES)
  Receive Date: 20240520
  Receipt Date: 20240802
  Transmission Date: 20241016
  Serious: Yes (Other)
  Sender: AUROBINDO
  Company Number: ES-ACORDA-ACO_176376_2024

PATIENT
  Age: 74 Year
  Sex: Female

DRUGS (14)
  1. MIRTAZAPINE [Suspect]
     Active Substance: MIRTAZAPINE
     Indication: Product used for unknown indication
     Dosage: UNK, HS
     Route: 065
  2. BRINTELLIX [Suspect]
     Active Substance: VORTIOXETINE HYDROBROMIDE
     Indication: Depression
     Dosage: 20 MILLIGRAM(IN THE MORNING (ASCENDENT, STARTING WITH 1 DROP/DAY DURIN 1 WEEK AND INCREASING 1 DROP
     Route: 065
     Dates: start: 20240310
  3. INBRIJA [Suspect]
     Active Substance: LEVODOPA
     Indication: On and off phenomenon
     Dosage: 33 MILLIGRAM (MAX 2-3 PER DAY)
  4. INBRIJA [Suspect]
     Active Substance: LEVODOPA
     Dosage: 33 MILLIGRAM (MAX 2-3 PER DAY)
     Dates: start: 202312
  5. INBRIJA [Suspect]
     Active Substance: LEVODOPA
     Dosage: 33 MILLIGRAM (MAX 5 PER DAY)
     Dates: start: 20240611
  6. CARBIDOPA\LEVODOPA [Concomitant]
     Active Substance: CARBIDOPA\LEVODOPA
     Indication: Product used for unknown indication
     Dosage: RETARD, UNK
     Route: 065
  7. CARBIDOPA\LEVODOPA [Concomitant]
     Active Substance: CARBIDOPA\LEVODOPA
     Dosage: UNK,(25/100 PLUS: EVERY 3H, AT 8H (1 TABLET), 11H (1/2 OR 1 TABLET, DEPENDING WHETHER SHE FELT VERY
     Route: 065
  8. ONGENTYS [Concomitant]
     Active Substance: OPICAPONE
     Indication: Product used for unknown indication
     Dosage: UNK
     Route: 065
  9. LORAZEPAM [Concomitant]
     Active Substance: LORAZEPAM
     Indication: Product used for unknown indication
     Dosage: UNK, PRN
     Route: 065
  10. XADAGO [Concomitant]
     Active Substance: SAFINAMIDE MESYLATE
     Indication: Product used for unknown indication
     Dosage: UNK, 8H
     Route: 065
  11. ALPRAZOLAM [Concomitant]
     Active Substance: ALPRAZOLAM
     Indication: Product used for unknown indication
     Dosage: UNK, PRN
     Route: 065
  12. PAROXETINE HYDROCHLORIDE [Concomitant]
     Active Substance: PAROXETINE HYDROCHLORIDE\PAROXETINE HYDROCHLORIDE ANHYDROUS
     Indication: Product used for unknown indication
     Dosage: 20 MILLIGRAM,  1/2 TABLET IN THE MORNING
     Route: 065
  13. ALPRAZOLAM [Suspect]
     Active Substance: ALPRAZOLAM
     Indication: Product used for unknown indication
     Dosage: 0.5 MILLIGRAM(0.5 MILLIGRAM, 1 TABLET IN THE MORNING AND ANOTHER AT NIGH)
     Route: 065
  14. SERTRALINE HYDROCHLORIDE [Suspect]
     Active Substance: SERTRALINE HYDROCHLORIDE
     Indication: Anxiety
     Dosage: UNK
     Route: 065

REACTIONS (16)
  - Parkinson^s disease [Unknown]
  - Product residue present [Recovered/Resolved]
  - Cough [Recovered/Resolved]
  - Depressed mood [Not Recovered/Not Resolved]
  - Illness [Recovered/Resolved]
  - Anxiety [Recovered/Resolved]
  - Crying [Not Recovered/Not Resolved]
  - Hyperhidrosis [Recovered/Resolved]
  - Nightmare [Not Recovered/Not Resolved]
  - Product use issue [Unknown]
  - Inappropriate schedule of product administration [Not Recovered/Not Resolved]
  - Product cleaning inadequate [Recovered/Resolved]
  - Device delivery system issue [Unknown]
  - Drug dose omission by device [Recovered/Resolved]
  - Drug ineffective [Unknown]
  - Device difficult to use [Not Recovered/Not Resolved]

NARRATIVE: CASE EVENT DATE: 20231201
